FAERS Safety Report 5927905-4 (Version None)
Quarter: 2008Q4

REPORT INFORMATION
  Report Type: 
  Country: None (occurrence: None)
  Receive Date: 20081023
  Receipt Date: 20081013
  Transmission Date: 20090506
  Serious: Yes (Death)
  Sender: FDA-Public Use
  Company Number: US-BAYER-200814057BCC

PATIENT
  Sex: Female

DRUGS (1)
  1. ALKA SELTZER PLUS EFFERVESCENT COLD [Suspect]
     Indication: DRUG USE FOR UNKNOWN INDICATION
     Route: 048
     Dates: start: 20080801

REACTIONS (1)
  - CEREBRAL HAEMORRHAGE [None]
